FAERS Safety Report 13018272 (Version 4)
Quarter: 2017Q1

REPORT INFORMATION
  Report Type: Spontaneous
  Country: FR (occurrence: FR)
  Receive Date: 20161212
  Receipt Date: 20170317
  Transmission Date: 20170428
  Serious: Yes (Other)
  Sender: FDA-Public Use
  Company Number: FR-PFIZER INC-2016569456

PATIENT
  Age: 67 Year
  Sex: Male

DRUGS (7)
  1. NEURONTIN [Suspect]
     Active Substance: GABAPENTIN
     Indication: CAUDA EQUINA SYNDROME
     Dosage: 3 DF, DAILY
     Route: 048
  2. SEROPLEX [Suspect]
     Active Substance: ESCITALOPRAM OXALATE
     Dosage: DOSE REDUCED (UNSPECIFIED) (UNKNOWN)
     Route: 048
  3. ARICEPT [Suspect]
     Active Substance: DONEPEZIL HYDROCHLORIDE
     Indication: DEMENTIA
     Dosage: 10 MG, 1X/DAY
     Route: 048
     Dates: start: 2014, end: 20161109
  4. INEGY [Concomitant]
     Active Substance: EZETIMIBE\SIMVASTATIN
     Dosage: UNK
  5. NEURONTIN [Suspect]
     Active Substance: GABAPENTIN
     Dosage: (DOSE REDUCED (UNSPECIFIED) (UNKNOWN)
     Route: 048
  6. SEROPLEX [Suspect]
     Active Substance: ESCITALOPRAM OXALATE
     Dosage: 20 MG, 1X/DAY
     Route: 048
  7. BISOPROLOL HEMIFUMARATE [Concomitant]
     Active Substance: BISOPROLOL FUMARATE
     Dosage: UNK

REACTIONS (6)
  - Malaise [Recovered/Resolved]
  - Musculoskeletal disorder [Unknown]
  - Pallor [Unknown]
  - Jaw disorder [Unknown]
  - Cyanosis [Unknown]
  - Confusional state [Unknown]

NARRATIVE: CASE EVENT DATE: 2014
